FAERS Safety Report 6183355-X (Version None)
Quarter: 2009Q2

REPORT INFORMATION
  Report Type: 
  Country: None (occurrence: None)
  Receive Date: 20090507
  Receipt Date: 20090428
  Transmission Date: 20091009
  Serious: Yes (Hospitalization)
  Sender: FDA-Public Use
  Company Number: BR-TYCO HEALTHCARE/MALLINCKRODT-T200900959

PATIENT
  Age: 40 Year
  Sex: Male

DRUGS (1)
  1. OPTIRAY 300 [Suspect]
     Indication: INVESTIGATION
     Dosage: 100 ML, SINGLE (EV)
     Route: 042
     Dates: start: 20090408, end: 20090408

REACTIONS (4)
  - DIZZINESS [None]
  - GRAND MAL CONVULSION [None]
  - HYPERAEMIA [None]
  - RASH PAPULAR [None]
